FAERS Safety Report 4597506-1 (Version None)
Quarter: 2005Q1

REPORT INFORMATION
  Report Type: 
  Country: None (occurrence: None)
  Receive Date: 20050303
  Receipt Date: 20050223
  Transmission Date: 20050727
  Serious: Yes (Hospitalization)
  Sender: FDA-Public Use
  Company Number: US-ROCHE-396325

PATIENT
  Age: 66 Year
  Sex: Female

DRUGS (4)
  1. DACLIZUMAB [Suspect]
     Route: 065
  2. MYCOPHENOLATE MOFETIL [Suspect]
     Route: 065
  3. PROGRAF [Suspect]
     Route: 065
  4. STEROIDS NOS [Suspect]
     Route: 065

REACTIONS (5)
  - BLOOD CREATININE INCREASED [None]
  - DEHYDRATION [None]
  - DIARRHOEA [None]
  - FLUID OVERLOAD [None]
  - VENTRICULAR HYPERTROPHY [None]
